FAERS Safety Report 10387039 (Version 1)
Quarter: 2014Q1

REPORT INFORMATION
  Report Type: Spontaneous
  Country: US (occurrence: None)
  Receive Date: 20140306
  Receipt Date: 20140306
  Transmission Date: 20141002
  Serious: Yes (Hospitalization)
  Sender: FDA-Public Use
  Company Number: 163-21880-13043052

PATIENT
  Age: 87 Year
  Sex: Male

DRUGS (7)
  1. REVLIMID (LENALIDOMIDE) (5 MILLIGRAM, CAPSULES) [Suspect]
     Indication: 5Q MINUS SYNDROME
     Route: 048
     Dates: start: 20130320, end: 20130405
  2. LASIX (FUROSEMIDE) [Concomitant]
  3. DIGOXIN [Concomitant]
  4. CARDIZEM (DILTIAZEM HYDROCHLORIDE) [Concomitant]
  5. METOPROLOL [Concomitant]
  6. NORVASC (AMLODIPINE BESILATE) [Concomitant]
  7. SPIRONOLACTONE [Concomitant]

REACTIONS (2)
  - Pulmonary hypertension [None]
  - Cardiac failure congestive [None]
